FAERS Safety Report 15403030 (Version 7)
Quarter: 2019Q3

REPORT INFORMATION
  Report Type: Spontaneous
  Country: JP (occurrence: JP)
  Receive Date: 20180919
  Receipt Date: 20190712
  Transmission Date: 20191004
  Serious: Yes (Hospitalization, Other)
  Sender: FDA-Public Use
  Company Number: JP-PFIZER INC-2018321022

PATIENT
  Age: 73 Year
  Sex: Male

DRUGS (7)
  1. MOHRUS [Concomitant]
     Active Substance: KETOPROFEN
     Indication: ANTIINFLAMMATORY THERAPY
     Dosage: 60 MG, DAILY (1 PATCH TWICE DAILY)
     Route: 062
     Dates: start: 20180614, end: 20180621
  2. AZUCURENIN S [Concomitant]
     Active Substance: GLUTAMINE
     Indication: GASTROINTESTINAL MUCOSAL DISORDER
     Dosage: 0.5 G, 2X/DAY
     Route: 048
     Dates: start: 20180614, end: 20180621
  3. CELECOX [Suspect]
     Active Substance: CELECOXIB
     Indication: CONTUSION
     Dosage: 200 MG, DAILY
     Route: 048
     Dates: start: 20180614, end: 20180621
  4. CELECOX [Suspect]
     Active Substance: CELECOXIB
     Indication: MUSCULOSKELETAL PAIN
  5. MOHRUS [Concomitant]
     Active Substance: KETOPROFEN
     Indication: ANALGESIC THERAPY
  6. SUVENYL [Concomitant]
     Active Substance: HYALURONATE SODIUM
     Dosage: 2.5 ML, WEEKLY
     Route: 014
     Dates: start: 20180614, end: 20180621
  7. CELECOX [Suspect]
     Active Substance: CELECOXIB
     Indication: CHEST PAIN

REACTIONS (7)
  - Rash [Unknown]
  - Decreased appetite [Unknown]
  - Weight decreased [Unknown]
  - Hepatitis [Unknown]
  - Constipation [Unknown]
  - Drug-induced liver injury [Unknown]
  - Diabetes mellitus [Unknown]

NARRATIVE: CASE EVENT DATE: 20180615
